FAERS Safety Report 20068399 (Version 1)
Quarter: 2021Q4

REPORT INFORMATION
  Report Type: Spontaneous
  Country: AU (occurrence: AU)
  Receive Date: 20211115
  Receipt Date: 20211115
  Transmission Date: 20220304
  Serious: Yes (Other)
  Sender: FDA-Public Use
  Company Number: AU-ABBVIE-21K-008-4117038-00

PATIENT

DRUGS (9)
  1. ISOFLURANE [Suspect]
     Active Substance: ISOFLURANE
     Indication: Maternal exposure timing unspecified
     Route: 064
  2. BUDESONIDE [Suspect]
     Active Substance: BUDESONIDE
     Indication: Maternal exposure timing unspecified
     Route: 064
  3. FENTANYL [Suspect]
     Active Substance: FENTANYL
     Indication: Maternal exposure timing unspecified
     Route: 064
  4. MIDAZOLAM [Suspect]
     Active Substance: MIDAZOLAM
     Indication: Maternal exposure timing unspecified
     Route: 064
  5. PROPOFOL [Suspect]
     Active Substance: PROPOFOL
     Indication: Maternal exposure timing unspecified
     Route: 064
  6. RANITIDINE [Suspect]
     Active Substance: RANITIDINE
     Indication: Maternal exposure timing unspecified
     Route: 064
  7. SUCCINYLCHOLINE CHLORIDE DIHYDRATE [Suspect]
     Active Substance: SUCCINYLCHOLINE CHLORIDE DIHYDRATE
     Indication: Maternal exposure timing unspecified
     Route: 064
  8. METARAMINOL BITARTRATE [Suspect]
     Active Substance: METARAMINOL BITARTRATE
     Indication: Maternal exposure timing unspecified
     Route: 064
  9. ALBUTEROL [Suspect]
     Active Substance: ALBUTEROL
     Indication: Maternal exposure timing unspecified
     Route: 064

REACTIONS (2)
  - Premature baby [Unknown]
  - Foetal exposure during pregnancy [Unknown]
